FAERS Safety Report 8365355-4 (Version None)
Quarter: 2012Q2

REPORT INFORMATION
  Report Type: 
  Country: None (occurrence: None)
  Receive Date: 20120516
  Receipt Date: 20120509
  Transmission Date: 20120825
  Serious: Yes (Other)
  Sender: FDA-Public Use
  Company Number: JP-PFIZER INC-2012112481

PATIENT
  Age: 8 Month
  Sex: Male

DRUGS (2)
  1. HYDROCORTISONE [Suspect]
     Indication: ASTHMA
     Route: 042
  2. METHYLPREDNISOLONE [Suspect]
     Route: 042

REACTIONS (1)
  - ANAPHYLACTIC REACTION [None]
